FAERS Safety Report 12525815 (Version 1)
Quarter: 2016Q3

REPORT INFORMATION
  Report Type: Report from Study
  Country: CO (occurrence: CO)
  Receive Date: 20160705
  Receipt Date: 20160705
  Transmission Date: 20161109
  Serious: Yes (Hospitalization)
  Sender: FDA-Public Use
  Company Number: CO-BRISTOL-MYERS SQUIBB COMPANY-BMS-2016-053158

PATIENT
  Sex: Male

DRUGS (2)
  1. DACLATASVIR DIHYDROCHLORIDE [Suspect]
     Active Substance: DACLATASVIR DIHYDROCHLORIDE
     Indication: HEPATITIS C
     Dosage: 60 MG, QD
     Route: 065
     Dates: start: 20160228
  2. ASUNAPREVIR [Suspect]
     Active Substance: ASUNAPREVIR
     Indication: HEPATITIS C
     Dosage: UNK, QD
     Route: 065
     Dates: start: 20160228

REACTIONS (1)
  - Liver disorder [Unknown]
